FAERS Safety Report 18642729 (Version 5)
Quarter: 2021Q1

REPORT INFORMATION
  Report Type: Report from Study
  Country: CA (occurrence: CA)
  Receive Date: 20201221
  Receipt Date: 20210126
  Transmission Date: 20210419
  Serious: Yes (Other)
  Sender: FDA-Public Use
  Company Number: CA-SAMSUNG BIOEPIS-SB-2020-37563

PATIENT
  Age: 43 Year
  Sex: Female

DRUGS (9)
  1. AMITRIPTYLINE [Concomitant]
     Active Substance: AMITRIPTYLINE
     Indication: PRODUCT USED FOR UNKNOWN INDICATION
     Dosage: UNKNOWN
     Route: 065
  2. RENFLEXIS [Suspect]
     Active Substance: INFLIXIMAB-ABDA
     Dosage: WEEK SIX
     Route: 042
     Dates: start: 20200804
  3. RENFLEXIS [Suspect]
     Active Substance: INFLIXIMAB-ABDA
     Route: 042
     Dates: start: 20200915, end: 20201027
  4. OXYCOCET [Concomitant]
     Active Substance: ACETAMINOPHEN\OXYCODONE HYDROCHLORIDE
     Indication: PRODUCT USED FOR UNKNOWN INDICATION
     Dosage: UNKNOWN
     Route: 065
  5. CELEBREX [Concomitant]
     Active Substance: CELECOXIB
     Indication: PRODUCT USED FOR UNKNOWN INDICATION
     Dosage: UNKNOWN
     Route: 065
  6. RENFLEXIS [Suspect]
     Active Substance: INFLIXIMAB-ABDA
     Dosage: WEEK TWO
     Route: 042
     Dates: start: 20200707
  7. RENFLEXIS [Suspect]
     Active Substance: INFLIXIMAB-ABDA
     Indication: ANKYLOSING SPONDYLITIS
     Route: 042
     Dates: start: 20200623
  8. METHOTREXATE SODIUM. [Suspect]
     Active Substance: METHOTREXATE SODIUM
     Indication: PRODUCT USED FOR UNKNOWN INDICATION
     Dosage: PF 50 MG/2 ML INJECTION VIAL (ML)
     Route: 058
  9. FOLIC ACID. [Concomitant]
     Active Substance: FOLIC ACID
     Indication: PRODUCT USED FOR UNKNOWN INDICATION
     Dosage: TAKING ONE TABLET FOR THREE CONSECUTIVE MORNINGS AFTER THE METHOTREXATE DOSE
     Route: 048

REACTIONS (7)
  - Suspected COVID-19 [Unknown]
  - Malaise [Unknown]
  - Paradoxical psoriasis [Not Recovered/Not Resolved]
  - Alopecia [Unknown]
  - Musculoskeletal stiffness [Unknown]
  - Pneumonia [Unknown]
  - Spinal pain [Unknown]
